FAERS Safety Report 13895962 (Version 2)
Quarter: 2017Q3

REPORT INFORMATION
  Report Type: Spontaneous
  Country: FR (occurrence: FR)
  Receive Date: 20170823
  Receipt Date: 20170926
  Transmission Date: 20171127
  Serious: Yes (Other)
  Sender: FDA-Public Use
  Company Number: FR-AUROBINDO-AUR-APL-2017-39233

PATIENT
  Age: 22 Year
  Sex: Male

DRUGS (7)
  1. NORADRENALIN                       /00127501/ [Concomitant]
     Active Substance: NOREPINEPHRINE\NOREPINEPHRINE BITARTRATE
     Indication: HYPOTENSION
     Dosage: 2 MG/ML, UNK
     Route: 042
     Dates: start: 20170728
  2. DOBUTAMINE PANPHARMA [Concomitant]
     Active Substance: DOBUTAMINE\DOBUTAMINE HYDROCHLORIDE
     Indication: HYPOTENSION
     Dosage: UNK
     Route: 042
     Dates: start: 20170731
  3. AUGMENTIN [Suspect]
     Active Substance: AMOXICILLIN\CLAVULANATE POTASSIUM
     Indication: PNEUMONIA ASPIRATION
     Dosage: 1G/125 MG , 2 DF, 3 TIMES A DAY
     Route: 048
     Dates: start: 20170728, end: 20170801
  4. HEPARINA CHOAY [Concomitant]
     Indication: THROMBOSIS PROPHYLAXIS
     Dosage: 25000 UI/ML, UNK
     Route: 058
     Dates: start: 20170728
  5. LASILIX                            /00032601/ [Concomitant]
     Active Substance: FUROSEMIDE
     Indication: PRODUCT USED FOR UNKNOWN INDICATION
     Dosage: UNK
     Route: 042
     Dates: start: 20170728
  6. OMEPRAZOLE MYLAN                   /00661201/ [Concomitant]
     Indication: PROPHYLAXIS AGAINST GASTROINTESTINAL ULCER
     Dosage: 1 DF, ONCE A DAY
     Route: 042
     Dates: start: 20170728, end: 20170801
  7. GABAPENTIN ARROW [Suspect]
     Active Substance: GABAPENTIN
     Indication: PRODUCT USED FOR UNKNOWN INDICATION
     Dosage: 300 MG, TWO TIMES A DAY
     Route: 048
     Dates: start: 20170730, end: 20170731

REACTIONS (1)
  - Agranulocytosis [Recovered/Resolved]

NARRATIVE: CASE EVENT DATE: 20170801
